FAERS Safety Report 15043480 (Version 1)
Quarter: 2018Q2

REPORT INFORMATION
  Report Type: Spontaneous
  Country: US (occurrence: US)
  Receive Date: 20180621
  Receipt Date: 20180621
  Transmission Date: 20180711
  Serious: No
  Sender: FDA-Public Use
  Company Number: US-SA-2018SA165047

PATIENT
  Age: 31 Year
  Sex: Male

DRUGS (3)
  1. DOXYCYCLINE HCL [Concomitant]
     Active Substance: DOXYCYCLINE HYDROCHLORIDE
  2. DUPIXENT [Suspect]
     Active Substance: DUPILUMAB
     Indication: PRODUCT USED FOR UNKNOWN INDICATION
     Dosage: UNK, QOW
     Route: 058
     Dates: start: 20180302, end: 201804
  3. PREDNISONE. [Concomitant]
     Active Substance: PREDNISONE

REACTIONS (5)
  - Facial paralysis [Unknown]
  - Osteitis [Unknown]
  - Ear pain [Unknown]
  - Gastroenteritis viral [Unknown]
  - Hypoaesthesia [Unknown]
